FAERS Safety Report 10914630 (Version 1)
Quarter: 2015Q1

REPORT INFORMATION
  Report Type: Spontaneous
  Country: GB (occurrence: GB)
  Receive Date: 20150313
  Receipt Date: 20150313
  Transmission Date: 20150721
  Serious: Yes (Death, Other)
  Sender: FDA-Public Use
  Company Number: GB-GLAXOSMITHKLINE-GB2015030257

PATIENT
  Age: 67 Year
  Sex: Female
  Weight: 60 kg

DRUGS (11)
  1. METOPROLOL [Concomitant]
     Active Substance: METOPROLOL
  2. HUMAN ACTRAPID [Concomitant]
     Active Substance: INSULIN HUMAN
  3. AMIODARONE [Concomitant]
     Active Substance: AMIODARONE
  4. NOREPINEPHRINE [Concomitant]
     Active Substance: NOREPINEPHRINE\NOREPINEPHRINE BITARTRATE
  5. LEVOTHYROXINE [Concomitant]
     Active Substance: LEVOTHYROXINE
  6. MEROPENEM. [Concomitant]
     Active Substance: MEROPENEM
  7. OSELTAMIVIR [Concomitant]
     Active Substance: OSELTAMIVIR
  8. PREDNISOLONE. [Concomitant]
     Active Substance: PREDNISOLONE
  9. FUROSEMIDE. [Concomitant]
     Active Substance: FUROSEMIDE
  10. METHYLPREDNISOLONE. [Concomitant]
     Active Substance: METHYLPREDNISOLONE
  11. RELENZA [Suspect]
     Active Substance: ZANAMIVIR
     Indication: PNEUMONIA VIRAL
     Route: 042
     Dates: start: 20150202, end: 20150204

REACTIONS (2)
  - Drug ineffective [Unknown]
  - Death [Fatal]
